FAERS Safety Report 6523625-6 (Version None)
Quarter: 2009Q4

REPORT INFORMATION
  Report Type: 
  Country: None (occurrence: None)
  Receive Date: 20091231
  Receipt Date: 20091225
  Transmission Date: 20100525
  Serious: Yes (Death, Hospitalization)
  Sender: FDA-Public Use
  Company Number: PHBS2005JP17489

PATIENT
  Sex: Female
  Weight: 58 kg

DRUGS (11)
  1. AREDIA [Suspect]
     Indication: METASTASES TO BONE
     Dosage: 45 TO 90 MG/DAY
     Route: 042
     Dates: start: 20031101
  2. CHEMOTHERAPEUTICS,OTHER [Concomitant]
     Route: 065
  3. AROMASIN [Concomitant]
     Indication: BREAST CANCER
     Dosage: 25 MG/D
     Route: 048
     Dates: start: 20031127, end: 20040427
  4. TAS-108 [Concomitant]
     Indication: BREAST CANCER
     Dosage: 80 MG/D
     Route: 048
     Dates: start: 20040601, end: 20040802
  5. EPIDOSIN [Concomitant]
     Indication: BREAST CANCER
     Dosage: 100 MG/D
     Route: 042
     Dates: start: 20040803, end: 20050215
  6. ENDOXAN [Concomitant]
     Indication: BREAST CANCER
     Dosage: 1000 MG/D
     Route: 042
     Dates: start: 20040803, end: 20050215
  7. UFT [Concomitant]
     Indication: BREAST CANCER
     Dosage: 400 MG/D
     Route: 048
     Dates: start: 20040803, end: 20050215
  8. TAXOL [Concomitant]
     Indication: BREAST CANCER
     Dosage: 130 MG/D
     Route: 042
     Dates: start: 20050316, end: 20050614
  9. HERCEPTIN [Concomitant]
     Indication: BREAST CANCER
     Dosage: 120 MG/D
     Route: 042
     Dates: start: 20050316
  10. XELODA [Concomitant]
     Indication: BREAST CANCER
     Dosage: 600 MG/D
     Route: 048
     Dates: start: 20050705, end: 20051018
  11. NAVELBINE [Concomitant]
     Indication: BREAST CANCER
     Dosage: 40 MG/D
     Route: 042
     Dates: start: 20051025

REACTIONS (22)
  - BONE DISORDER [None]
  - BONE SWELLING [None]
  - BONE TRIMMING [None]
  - DEBRIDEMENT [None]
  - DYSAESTHESIA [None]
  - FISTULA [None]
  - GINGIVAL ERYTHEMA [None]
  - GINGIVAL SWELLING [None]
  - GRANULOMA [None]
  - HAEMATOCRIT ABNORMAL [None]
  - MALIGNANT NEOPLASM PROGRESSION [None]
  - OSTEOMYELITIS [None]
  - OSTEONECROSIS [None]
  - PAIN IN JAW [None]
  - PLATELET DISORDER [None]
  - PRIMARY SEQUESTRUM [None]
  - PURULENT DISCHARGE [None]
  - RED BLOOD CELL ABNORMALITY [None]
  - SUTURE INSERTION [None]
  - TOOTH EXTRACTION [None]
  - WHITE BLOOD CELL DISORDER [None]
  - WOUND TREATMENT [None]
